FAERS Safety Report 24978218 (Version 2)
Quarter: 2025Q1

REPORT INFORMATION
  Report Type: Spontaneous
  Country: CL (occurrence: CL)
  Receive Date: 20250217
  Receipt Date: 20250219
  Transmission Date: 20250409
  Serious: No
  Sender: PFIZER
  Company Number: CL-PFIZER INC-PV202500012653

PATIENT
  Age: 10 Year
  Sex: Male

DRUGS (1)
  1. GENOTROPIN [Suspect]
     Active Substance: SOMATROPIN

REACTIONS (1)
  - Device physical property issue [Unknown]
